FAERS Safety Report 5645942-4 (Version None)
Quarter: 2008Q1

REPORT INFORMATION
  Report Type: 
  Country: None (occurrence: None)
  Receive Date: 20080131
  Receipt Date: 20071217
  Transmission Date: 20080703
  Serious: Yes (Death, Hospitalization)
  Sender: FDA-Public Use
  Company Number: 163-21880-07120955

PATIENT
  Age: 65 Year
  Sex: Female

DRUGS (1)
  1. REVLIMID [Suspect]
     Indication: MULTIPLE MYELOMA
     Dosage: 10 MG, QD X 21 DAYS, ORAL
     Route: 048
     Dates: start: 20071003, end: 20071211

REACTIONS (3)
  - DEATH [None]
  - DISEASE COMPLICATION [None]
  - RENAL FAILURE [None]
